FAERS Safety Report 13697890 (Version 1)
Quarter: 2017Q2

REPORT INFORMATION
  Report Type: Spontaneous
  Country: US (occurrence: US)
  Receive Date: 20170628
  Receipt Date: 20170628
  Transmission Date: 20170830
  Serious: Yes (Other)
  Sender: FDA-Public Use
  Company Number: US-GLAXOSMITHKLINE-US2017096807

PATIENT
  Sex: Female

DRUGS (1)
  1. SENSODYNE FRESH IMPACT [Suspect]
     Active Substance: POTASSIUM NITRATE\SODIUM FLUORIDE
     Indication: PRODUCT USED FOR UNKNOWN INDICATION
     Dosage: UNK

REACTIONS (5)
  - Hypersensitivity [Recovered/Resolved]
  - Oral mucosal blistering [Recovered/Resolved]
  - Oral discomfort [Recovered/Resolved]
  - Lip neoplasm malignant stage unspecified [Recovered/Resolved]
  - Lip blister [Recovered/Resolved]
